FAERS Safety Report 9813499 (Version 1)
Quarter: 2014Q1

REPORT INFORMATION
  Report Type: Spontaneous
  Country: US (occurrence: US)
  Receive Date: 20140113
  Receipt Date: 20140113
  Transmission Date: 20141002
  Serious: Yes (Other)
  Sender: FDA-Public Use
  Company Number: US-TEVA-453668USA

PATIENT
  Sex: Female

DRUGS (1)
  1. WARFARIN [Suspect]

REACTIONS (3)
  - Haemorrhage [Unknown]
  - Diverticulitis [Unknown]
  - Liver disorder [Unknown]
